FAERS Safety Report 9302531 (Version 1)
Quarter: 2013Q2

REPORT INFORMATION
  Report Type: Spontaneous
  Country: CH (occurrence: CH)
  Receive Date: 20130522
  Receipt Date: 20130522
  Transmission Date: 20140414
  Serious: Yes (Other)
  Sender: FDA-Public Use
  Company Number: CH-RANBAXY-2013RR-69225

PATIENT
  Age: 57 Year
  Sex: Female

DRUGS (7)
  1. RANITIDINE [Suspect]
     Indication: ANGIOEDEMA
     Dosage: 300 MG, QD
     Route: 048
     Dates: start: 2013
  2. LORADO [Concomitant]
     Indication: ANGIOEDEMA
     Dosage: UNK
     Route: 065
  3. INDERAL [Concomitant]
     Indication: PRODUCT USED FOR UNKNOWN INDICATION
     Dosage: 10 MG, BID
     Route: 065
  4. MAGNESIOCARD [Concomitant]
     Indication: PRODUCT USED FOR UNKNOWN INDICATION
     Dosage: 2.5 MG, QD
     Route: 065
  5. METAMUCIL [Concomitant]
     Indication: PRODUCT USED FOR UNKNOWN INDICATION
     Dosage: 2 DF, QD
     Route: 065
  6. FORLAX [Concomitant]
     Indication: PRODUCT USED FOR UNKNOWN INDICATION
     Dosage: 3 DF, 1/WEEK
     Route: 065
  7. ZOMIG [Concomitant]
     Indication: PRODUCT USED FOR UNKNOWN INDICATION
     Dosage: 2.5 MG, PRN
     Route: 065

REACTIONS (1)
  - Depression [Recovered/Resolved]
